FAERS Safety Report 18574594 (Version 1)
Quarter: 2020Q4

REPORT INFORMATION
  Report Type: Spontaneous
  Country: US (occurrence: US)
  Receive Date: 20201202
  Receipt Date: 20201202
  Transmission Date: 20210114
  Serious: Yes (Hospitalization)
  Sender: FDA-Public Use
  Company Number: None

PATIENT
  Age: 72 Year
  Sex: Male

DRUGS (2)
  1. CETUXIMAB (CETUXIMAB 2MG/ML INJ, 50ML) [Suspect]
     Active Substance: CETUXIMAB
     Indication: NEOPLASM MALIGNANT
     Dates: start: 20200702
  2. IRINOTECAN (IRINOTECAN HCL 20MG/ML INJ, SOLN) [Suspect]
     Active Substance: IRINOTECAN
     Dates: start: 20200618

REACTIONS (4)
  - Fatigue [None]
  - Diarrhoea [None]
  - Dizziness [None]
  - Sedation [None]

NARRATIVE: CASE EVENT DATE: 20200903
